FAERS Safety Report 5610401-1 (Version None)
Quarter: 2008Q1

REPORT INFORMATION
  Report Type: 
  Country: None (occurrence: None)
  Receive Date: 20080128
  Receipt Date: 20071205
  Transmission Date: 20080703
  Serious: Yes (Hospitalization)
  Sender: FDA-Public Use
  Company Number: CLOF-10532

PATIENT
  Age: 9 Year
  Sex: Female
  Weight: 25.2 kg

DRUGS (38)
  1. CLOFARABINE. MFR: GENZYME [Suspect]
     Indication: ACUTE LYMPHOCYTIC LEUKAEMIA
     Dosage: 30 MG/M2 IV
     Route: 042
     Dates: start: 20061129, end: 20061206
  2. CLOFARABINE. MFR: GENZYME [Suspect]
     Indication: ACUTE LYMPHOCYTIC LEUKAEMIA
     Dosage: 20 MG/M2 IV
     Route: 042
     Dates: start: 20061226, end: 20061229
  3. CLOFARABINE. MFR: GENZYME [Suspect]
     Indication: ACUTE LYMPHOCYTIC LEUKAEMIA
     Dosage: 20 MG/M2 IV
     Route: 042
     Dates: start: 20070123, end: 20070126
  4. CLOFARABINE. MFR: GENZYME [Suspect]
     Indication: ACUTE LYMPHOCYTIC LEUKAEMIA
     Dosage: 20 MG/M2 IV
     Route: 042
     Dates: start: 20070123, end: 20070126
  5. CLOFARABINE. MFR: GENZYME [Suspect]
     Indication: ACUTE LYMPHOCYTIC LEUKAEMIA
     Dosage: 20 MG/M2 IV
     Route: 042
     Dates: start: 20060226, end: 20060301
  6. CLOFARABINE. MFR: GENZYME [Suspect]
     Indication: ACUTE LYMPHOCYTIC LEUKAEMIA
     Dosage: 20 MG/M2 QD IV
     Route: 042
     Dates: start: 20070412, end: 20070415
  7. ETOPOSIDE [Suspect]
     Indication: ACUTE LYMPHOCYTIC LEUKAEMIA
     Dosage: 100 MG/M2 IV
     Route: 042
     Dates: start: 20061129, end: 20061206
  8. ETOPOSIDE [Suspect]
     Indication: ACUTE LYMPHOCYTIC LEUKAEMIA
     Dosage: 100 MG/M2 IV
     Route: 042
     Dates: start: 20061226, end: 20061229
  9. ETOPOSIDE [Suspect]
     Indication: ACUTE LYMPHOCYTIC LEUKAEMIA
     Dosage: 100 MG/M2 IV
     Route: 042
     Dates: start: 20070123, end: 20070126
  10. ETOPOSIDE [Suspect]
     Indication: ACUTE LYMPHOCYTIC LEUKAEMIA
     Dosage: 100 MG/M2 IV
     Route: 042
     Dates: start: 20070227, end: 20070302
  11. ETOPOSIDE [Suspect]
     Indication: ACUTE LYMPHOCYTIC LEUKAEMIA
     Dosage: 100 MG/M2 QD IV
     Route: 042
     Dates: start: 20070413, end: 20070416
  12. CYCLOPHOSPHAMIDE [Suspect]
     Indication: ACUTE LYMPHOCYTIC LEUKAEMIA
     Dosage: 440 MG/M2 QD X 5 IV
     Route: 042
     Dates: start: 20061129, end: 20061206
  13. CYCLOPHOSPHAMIDE [Suspect]
     Indication: ACUTE LYMPHOCYTIC LEUKAEMIA
     Dosage: 460 MG/M2 IV
     Route: 042
     Dates: start: 20061226, end: 20061229
  14. CYCLOPHOSPHAMIDE [Suspect]
     Indication: ACUTE LYMPHOCYTIC LEUKAEMIA
     Dosage: 460 MG/M2 IV
     Route: 042
     Dates: start: 20060123, end: 20060126
  15. CYCLOPHOSPHAMIDE [Suspect]
     Indication: ACUTE LYMPHOCYTIC LEUKAEMIA
     Dosage: 440 MG/M2 IV
     Route: 042
     Dates: start: 20060227, end: 20060302
  16. CYCLOPHOSPHAMIDE [Suspect]
     Indication: ACUTE LYMPHOCYTIC LEUKAEMIA
     Dosage: 440 MG/M2 IV
     Route: 042
     Dates: start: 20070413, end: 20070416
  17. LEVAQUIN [Concomitant]
  18. BACTRIM [Concomitant]
  19. NASONEX [Concomitant]
  20. VORICONAZOLE [Concomitant]
  21. SODIUM CHLORIDE NASAL SPRAY [Concomitant]
  22. ACETAMINOPHEN [Concomitant]
  23. MAGNESIUM HYDROXIDE TAB [Concomitant]
  24. AMIKACIN [Concomitant]
  25. CEFEPIME [Concomitant]
  26. DIPHENHYDRATE [Concomitant]
  27. DOCUSATE-SENNA [Concomitant]
  28. FLUOXETINE [Concomitant]
  29. GANCICLOVIR [Concomitant]
  30. FLUTICASONE PROPIONATE [Concomitant]
  31. MAGNESIUM HYDROXIDE TAB [Concomitant]
  32. MEROPENEM [Concomitant]
  33. MORPHINE [Concomitant]
  34. NYSTATIN [Concomitant]
  35. MIRALAX [Concomitant]
  36. PSEUDOEPHEDRINE HCL [Concomitant]
  37. VANCOMYCIN [Concomitant]
  38. OFLOXACIN [Concomitant]

REACTIONS (14)
  - ANOREXIA [None]
  - ATELECTASIS [None]
  - BLOOD DISORDER [None]
  - BONE MARROW TRANSPLANT [None]
  - CYTOMEGALOVIRUS INFECTION [None]
  - DEPRESSION [None]
  - EPISTAXIS [None]
  - FEBRILE NEUTROPENIA [None]
  - HERPES VIRUS INFECTION [None]
  - PANCREATITIS [None]
  - RESPIRATORY FAILURE [None]
  - SINUSITIS [None]
  - URINARY TRACT INFECTION [None]
  - WEIGHT DECREASED [None]
